FAERS Safety Report 15427769 (Version 1)
Quarter: 2018Q3

REPORT INFORMATION
  Report Type: Spontaneous
  Country: GB (occurrence: GB)
  Receive Date: 20180926
  Receipt Date: 20180926
  Transmission Date: 20181010
  Serious: Yes (Other)
  Sender: FDA-Public Use
  Company Number: GB-SUN PHARMACEUTICAL INDUSTRIES LTD-2018RR-185344

PATIENT
  Age: 30 Year
  Sex: Female
  Weight: 82.55 kg

DRUGS (1)
  1. SERTRALINE 50 MG FILM?COATED TABLETS [Suspect]
     Active Substance: SERTRALINE HYDROCHLORIDE
     Indication: DEPRESSION
     Dosage: 50 MG, UNK
     Route: 048
     Dates: start: 20180815, end: 20180828

REACTIONS (6)
  - Insomnia [Recovering/Resolving]
  - Depression suicidal [Recovering/Resolving]
  - Nightmare [Recovering/Resolving]
  - Diarrhoea [Recovering/Resolving]
  - Vomiting [Recovering/Resolving]
  - Product substitution issue [Unknown]
